FAERS Safety Report 6170138-X (Version None)
Quarter: 2009Q2

REPORT INFORMATION
  Report Type: 
  Country: None (occurrence: None)
  Receive Date: 20090428
  Receipt Date: 20090421
  Transmission Date: 20091009
  Serious: Yes (Other)
  Sender: FDA-Public Use
  Company Number: B0571253A

PATIENT

DRUGS (2)
  1. NIQUITIN CQ CLEAR 21MG [Suspect]
     Indication: DRUG USE FOR UNKNOWN INDICATION
     Route: 062
  2. SYMBICORT [Concomitant]
     Route: 055

REACTIONS (4)
  - APHASIA [None]
  - DISTURBANCE IN ATTENTION [None]
  - MALAISE [None]
  - SKIN BURNING SENSATION [None]
